FAERS Safety Report 18992086 (Version 4)
Quarter: 2021Q2

REPORT INFORMATION
  Report Type: Spontaneous
  Country: JP (occurrence: JP)
  Receive Date: 20210310
  Receipt Date: 20210518
  Transmission Date: 20210717
  Serious: Yes (Other)
  Sender: FDA-Public Use
  Company Number: JP-DSJP-DSJ-2021-106790

PATIENT
  Age: 80 Year
  Sex: Female
  Weight: 36 kg

DRUGS (7)
  1. ENHERTU [Suspect]
     Active Substance: FAM-TRASTUZUMAB DERUXTECAN-NXKI
     Dosage: 243 MG, ONCE EVERY 3 WK
     Route: 041
     Dates: start: 20201222, end: 20201222
  2. ENHERTU [Suspect]
     Active Substance: FAM-TRASTUZUMAB DERUXTECAN-NXKI
     Dosage: 243 MG, ONCE EVERY 3 WK
     Route: 041
     Dates: start: 20210325, end: 20210325
  3. ENHERTU [Suspect]
     Active Substance: FAM-TRASTUZUMAB DERUXTECAN-NXKI
     Indication: HER2 POSITIVE GASTRIC CANCER
     Dosage: 243 MG, ONCE EVERY 3 WK
     Route: 041
     Dates: start: 20201020, end: 20201020
  4. LIXIANA [Concomitant]
     Active Substance: EDOXABAN TOSYLATE
     Indication: DEEP VEIN THROMBOSIS
     Dosage: 30 MG, QD
     Route: 048
     Dates: start: 20200514
  5. ASPARA POTASSIUM [Concomitant]
     Active Substance: POTASSIUM ASPARTATE
     Indication: HYPOKALAEMIA
     Dosage: 300 MG, TID
     Route: 048
     Dates: start: 20201008
  6. ENHERTU [Suspect]
     Active Substance: FAM-TRASTUZUMAB DERUXTECAN-NXKI
     Dosage: 243 MG, ONCE EVERY 3 WK
     Route: 041
     Dates: start: 20201110, end: 20201110
  7. ENHERTU [Suspect]
     Active Substance: FAM-TRASTUZUMAB DERUXTECAN-NXKI
     Dosage: 243 MG, ONCE EVERY 3 WK
     Route: 041
     Dates: start: 20201201, end: 20201201

REACTIONS (4)
  - Pneumonia aspiration [Recovered/Resolved]
  - Dehydration [Recovering/Resolving]
  - Decreased appetite [Recovered/Resolved]
  - Renal impairment [Recovering/Resolving]

NARRATIVE: CASE EVENT DATE: 20210110
